FAERS Safety Report 5831455-3 (Version None)
Quarter: 2008Q3

REPORT INFORMATION
  Report Type: 
  Country: None (occurrence: None)
  Receive Date: 20080801
  Receipt Date: 20080722
  Transmission Date: 20090109
  Serious: Yes (Hospitalization, Congenital Anomaly, Other)
  Sender: FDA-Public Use
  Company Number: US-PFIZER INC-2008059668

PATIENT
  Sex: Male

DRUGS (1)
  1. GENOTROPIN [Suspect]
     Indication: HYPOPITUITARISM
     Route: 058

REACTIONS (2)
  - GASTRITIS [None]
  - PNEUMONIA [None]
